FAERS Safety Report 13563171 (Version 1)
Quarter: 2017Q2

REPORT INFORMATION
  Report Type: Spontaneous
  Country: US (occurrence: US)
  Receive Date: 20170518
  Receipt Date: 20170518
  Transmission Date: 20170830
  Serious: No
  Sender: FDA-Public Use
  Company Number: None

PATIENT
  Age: 83 Year
  Sex: Female

DRUGS (1)
  1. IBRANCE [Suspect]
     Active Substance: PALBOCICLIB
     Indication: BREAST CANCER FEMALE
     Dosage: 125MG DAILY, 3 WKS ON, 1 WK OFF PO
     Route: 048
     Dates: start: 20170427

REACTIONS (2)
  - Fatigue [None]
  - Asthenia [None]

NARRATIVE: CASE EVENT DATE: 20170518
